FAERS Safety Report 12924012 (Version 1)
Quarter: 2016Q4

REPORT INFORMATION
  Report Type: Spontaneous
  Country: US (occurrence: US)
  Receive Date: 20161109
  Receipt Date: 20161109
  Transmission Date: 20170207
  Serious: No
  Sender: FDA-Public Use
  Company Number: PHHY2016US153608

PATIENT
  Age: 43 Year
  Sex: Female

DRUGS (1)
  1. CAMBIA [Suspect]
     Active Substance: DICLOFENAC POTASSIUM
     Indication: PRODUCT USED FOR UNKNOWN INDICATION
     Dosage: 50 MG, UNK WITH 1-2OZ OF WATER
     Route: 048
     Dates: start: 20160705, end: 20160712

REACTIONS (1)
  - Drug intolerance [Recovering/Resolving]

NARRATIVE: CASE EVENT DATE: 20160712
